FAERS Safety Report 16638613 (Version 2)
Quarter: 2019Q3

REPORT INFORMATION
  Report Type: Spontaneous
  Country: OM (occurrence: OM)
  Receive Date: 20190726
  Receipt Date: 20190726
  Transmission Date: 20191004
  Serious: Yes (Death, Other)
  Sender: FDA-Public Use
  Company Number: PHHY2019OM173258

PATIENT
  Age: 70 Year
  Sex: Male

DRUGS (2)
  1. DICLOFENAC [Suspect]
     Active Substance: DICLOFENAC
     Indication: POST HERPETIC NEURALGIA
     Route: 065
  2. CARBAMAZEPINE. [Suspect]
     Active Substance: CARBAMAZEPINE
     Indication: POST HERPETIC NEURALGIA
     Route: 065

REACTIONS (14)
  - Large intestine perforation [Fatal]
  - Serositis [Fatal]
  - Product use in unapproved indication [Unknown]
  - Abdominal rigidity [Fatal]
  - Abdominal wall disorder [Fatal]
  - Sepsis [Unknown]
  - Abdominal pain [Fatal]
  - Intestinal ulcer [Fatal]
  - Abdominal distension [Fatal]
  - Abdominal tenderness [Fatal]
  - Wound infection [Unknown]
  - Gastrointestinal sounds abnormal [Fatal]
  - Pneumonia [Unknown]
  - Gastrointestinal disorder [Fatal]
